FAERS Safety Report 8395165-3 (Version None)
Quarter: 2012Q2

REPORT INFORMATION
  Report Type: 
  Country: None (occurrence: None)
  Receive Date: 20120530
  Receipt Date: 20120524
  Transmission Date: 20120825
  Serious: Yes (Hospitalization)
  Sender: FDA-Public Use
  Company Number: GB-PFIZER INC-2011276617

PATIENT
  Age: 75 Year
  Sex: Male

DRUGS (7)
  1. ATORVASTATIN CALCIUM [Suspect]
  2. ASPIRIN [Concomitant]
  3. METFORMIN [Concomitant]
  4. SITAGLIPTIN PHOSPHATE [Interacting]
     Indication: TYPE 2 DIABETES MELLITUS
     Route: 048
  5. PIOGLITAZONE HYDROCHLORIDE [Concomitant]
  6. RAMIPRIL [Concomitant]
  7. GLICLAZIDE [Concomitant]

REACTIONS (2)
  - RHABDOMYOLYSIS [None]
  - DRUG INTERACTION [None]
